FAERS Safety Report 7176356-6 (Version None)
Quarter: 2010Q4

REPORT INFORMATION
  Report Type: 
  Country: None (occurrence: None)
  Receive Date: 20101215
  Receipt Date: 20101215
  Transmission Date: 20110411
  Serious: No
  Sender: FDA-Public Use
  Company Number: None

PATIENT
  Age: 74 Year
  Sex: Female

DRUGS (1)
  1. LUMIGAN [Suspect]
     Indication: GLAUCOMA
     Dosage: INSTILL 1 DROP IN THE LEFT EYE AT BEDTIME
     Route: 047
     Dates: start: 20100301

REACTIONS (2)
  - ACCIDENTAL EXPOSURE [None]
  - PRODUCT DROPPER ISSUE [None]
